FAERS Safety Report 8013326-X (Version None)
Quarter: 2011Q4

REPORT INFORMATION
  Report Type: 
  Country: None (occurrence: None)
  Receive Date: 20111229
  Receipt Date: 20111223
  Transmission Date: 20120403
  Serious: Yes (Hospitalization, Other)
  Sender: FDA-Public Use
  Company Number: PHHO2011DE021610

PATIENT
  Sex: Male

DRUGS (5)
  1. CYCLOSPORINE [Suspect]
     Indication: RENAL TRANSPLANT
     Dosage: 400 MG, UNK
     Dates: start: 20111211
  2. PREDNISONE TAB [Suspect]
     Indication: RENAL TRANSPLANT
     Dosage: 80 MG, UNK
     Dates: start: 20111211
  3. NO TREATMENT RECEIVED [Suspect]
     Indication: RENAL TRANSPLANT
     Dosage: NO TREATMENT
  4. SIMULECT [Suspect]
     Indication: RENAL TRANSPLANT
     Dosage: 20 MG, UNK
     Dates: start: 20111211, end: 20111211
  5. MYCOPHENOLIC ACID [Suspect]
     Indication: RENAL TRANSPLANT
     Dosage: 2880 MG, UNK
     Route: 048
     Dates: start: 20111211

REACTIONS (4)
  - BLOOD PRESSURE DIASTOLIC DECREASED [None]
  - CONCOMITANT DISEASE PROGRESSION [None]
  - INFECTIOUS PERITONITIS [None]
  - MEGACOLON [None]
